FAERS Safety Report 6821693-5 (Version None)
Quarter: 2010Q3

REPORT INFORMATION
  Report Type: 
  Country: None (occurrence: None)
  Receive Date: 20100702
  Receipt Date: 20100621
  Transmission Date: 20110219
  Serious: Yes (Other)
  Sender: FDA-Public Use
  Company Number: DSJ-2010-10353

PATIENT
  Age: 69 Year
  Sex: Female
  Weight: 65 kg

DRUGS (1)
  1. BENICAR HCT [Suspect]
     Indication: HYPERTENSION
     Dosage: 40/12,5 MG (1 IN 1 D), PER ORAL
     Route: 048
     Dates: start: 20060101

REACTIONS (6)
  - DRUG INEFFECTIVE [None]
  - FIBULA FRACTURE [None]
  - HYPOTHYROIDISM [None]
  - OEDEMA PERIPHERAL [None]
  - TIBIA FRACTURE [None]
  - WEIGHT INCREASED [None]
